FAERS Safety Report 7166182-6 (Version None)
Quarter: 2010Q4

REPORT INFORMATION
  Report Type: 
  Country: None (occurrence: None)
  Receive Date: 20101203
  Receipt Date: 20101117
  Transmission Date: 20110411
  Serious: Yes (Other)
  Sender: FDA-Public Use
  Company Number: 022579

PATIENT
  Sex: Female
  Weight: 90.7 kg

DRUGS (10)
  1. KEPPRA [Suspect]
     Dates: start: 20100211, end: 20100404
  2. LACOSAMIDE [Suspect]
     Indication: CONVULSION
     Dosage: (ORAL)
     Route: 048
     Dates: start: 20100223, end: 20100310
  3. LORTAB [Concomitant]
  4. TOPIRAMATE [Concomitant]
  5. LISINOPRIL [Concomitant]
  6. CITALOPRAM [Concomitant]
  7. CLONAZEPAM [Concomitant]
  8. MELOXICAM [Concomitant]
  9. MULTI-VITAMINS [Concomitant]
  10. ASPIRIN [Concomitant]

REACTIONS (5)
  - ABDOMINAL PAIN UPPER [None]
  - CONDITION AGGRAVATED [None]
  - CONVULSION [None]
  - DRUG INEFFECTIVE [None]
  - LOSS OF CONSCIOUSNESS [None]
